FAERS Safety Report 6490738-7 (Version None)
Quarter: 2009Q4

REPORT INFORMATION
  Report Type: 
  Country: None (occurrence: None)
  Receive Date: 20091208
  Receipt Date: 20091125
  Transmission Date: 20100525
  Serious: Yes (Other)
  Sender: FDA-Public Use
  Company Number: JPI-P-009268

PATIENT
  Age: 49 Year
  Sex: Female
  Weight: 52.6173 kg

DRUGS (4)
  1. XYREM [Suspect]
     Indication: NARCOLEPSY
     Dosage: SEE IMAGE
     Route: 048
     Dates: start: 20091025, end: 20091110
  2. XYREM [Suspect]
     Indication: NARCOLEPSY
     Dosage: SEE IMAGE
     Route: 048
     Dates: start: 20091111, end: 20091116
  3. XYREM [Suspect]
     Indication: NARCOLEPSY
     Dosage: SEE IMAGE
     Route: 048
     Dates: start: 20091117, end: 20091117
  4. XYREM [Suspect]
     Indication: NARCOLEPSY
     Dosage: SEE IMAGE
     Route: 048
     Dates: start: 20091118, end: 20091119

REACTIONS (9)
  - APNOEA [None]
  - CONVULSION [None]
  - DEPRESSED LEVEL OF CONSCIOUSNESS [None]
  - DRUG DOSE OMISSION [None]
  - HYPOTONIA [None]
  - SINUSITIS [None]
  - UNRESPONSIVE TO STIMULI [None]
  - UPPER AIRWAY OBSTRUCTION [None]
  - VOMITING [None]
